FAERS Safety Report 9845270 (Version 1)
Quarter: 2014Q1

REPORT INFORMATION
  Report Type: Spontaneous
  Country: US (occurrence: None)
  Receive Date: 20140123
  Receipt Date: 20140123
  Transmission Date: 20141002
  Serious: Yes (Other)
  Sender: FDA-Public Use
  Company Number: None

PATIENT
  Age: 65 Year
  Sex: Female
  Weight: 92.99 kg

DRUGS (1)
  1. ENOXAPARIN [Suspect]
     Indication: PULMONARY EMBOLISM
     Dosage: 1 SYRINGE EVERY 12 HOURS TWICE DAILY GIVEN INTO/UNDER THE SKIN
     Dates: start: 20131227, end: 20131229

REACTIONS (2)
  - Anaphylactoid reaction [None]
  - Product substitution issue [None]
